FAERS Safety Report 13998125 (Version 3)
Quarter: 2017Q4

REPORT INFORMATION
  Report Type: Spontaneous
  Country: JP (occurrence: JP)
  Receive Date: 20170921
  Receipt Date: 20171108
  Transmission Date: 20180321
  Serious: Yes (Other)
  Sender: FDA-Public Use
  Company Number: JP-ALLERGAN-1753353US

PATIENT
  Age: 84 Year
  Sex: Female

DRUGS (25)
  1. JANUVIA [Concomitant]
     Active Substance: SITAGLIPTIN PHOSPHATE
     Indication: PRODUCT USED FOR UNKNOWN INDICATION
     Dosage: UNK
  2. MEVALOTIN [Concomitant]
     Active Substance: PRAVASTATIN SODIUM
     Dosage: 10 MG, 1D
  3. JZOLOFT [Concomitant]
     Active Substance: SERTRALINE HYDROCHLORIDE
     Dosage: 25 MG, 1D
  4. PANTOSIN [Concomitant]
     Active Substance: PANTETHINE
     Indication: PRODUCT USED FOR UNKNOWN INDICATION
     Dosage: UNK
  5. BOTOX [Suspect]
     Active Substance: ONABOTULINUMTOXINA
     Indication: MUSCLE SPASMS
     Dosage: 240-300 IU, SINGLE
     Route: 030
     Dates: start: 201507, end: 201507
  6. BOTOX [Suspect]
     Active Substance: ONABOTULINUMTOXINA
     Indication: FOOT DEFORMITY
     Dosage: 240-300 IU
     Route: 030
     Dates: start: 2016, end: 2016
  7. TAKEPRON [Concomitant]
     Active Substance: LANSOPRAZOLE
     Dosage: 15 MG, 1D
  8. JANUVIA [Concomitant]
     Active Substance: SITAGLIPTIN PHOSPHATE
     Dosage: 50 MG, 1D
  9. MICARDIS [Concomitant]
     Active Substance: TELMISARTAN
     Dosage: 40 MG, 1D
  10. JZOLOFT [Concomitant]
     Active Substance: SERTRALINE HYDROCHLORIDE
     Indication: PRODUCT USED FOR UNKNOWN INDICATION
     Dosage: UNK
  11. POLYFUL [Concomitant]
     Active Substance: CALCIUM POLYCARBOPHIL
     Dosage: 1000 MG, 1D
  12. CEREKINON [Concomitant]
     Active Substance: TRIMEBUTINE
     Indication: PRODUCT USED FOR UNKNOWN INDICATION
     Dosage: UNK
  13. SELBEX [Concomitant]
     Active Substance: TEPRENONE
     Dosage: 300 MG, 1D
  14. POLYFUL [Concomitant]
     Active Substance: CALCIUM POLYCARBOPHIL
     Indication: PRODUCT USED FOR UNKNOWN INDICATION
     Dosage: UNK
  15. BOTOX [Suspect]
     Active Substance: ONABOTULINUMTOXINA
     Indication: MUSCLE SPASMS
     Dosage: 300 IU, QD
     Route: 030
     Dates: start: 20170330, end: 20170330
  16. BOTOX [Suspect]
     Active Substance: ONABOTULINUMTOXINA
     Indication: FOOT DEFORMITY
     Dosage: 240-300 IU
     Route: 030
     Dates: start: 20151026, end: 20151026
  17. BOTOX [Suspect]
     Active Substance: ONABOTULINUMTOXINA
     Dosage: 240-300 IU
     Route: 030
     Dates: start: 20150702, end: 20150702
  18. CEREKINON [Concomitant]
     Active Substance: TRIMEBUTINE
     Dosage: 200 MG, 1D
  19. PANTOSIN [Concomitant]
     Active Substance: PANTETHINE
     Dosage: 400 MG, 1D
  20. NORVASC [Concomitant]
     Active Substance: AMLODIPINE BESYLATE
     Dosage: 2.5 MG, 1D
  21. TAKEPRON [Concomitant]
     Active Substance: LANSOPRAZOLE
     Indication: PRODUCT USED FOR UNKNOWN INDICATION
     Dosage: UNK
  22. MEVALOTIN [Concomitant]
     Active Substance: PRAVASTATIN SODIUM
     Indication: PRODUCT USED FOR UNKNOWN INDICATION
     Dosage: UNK
  23. MICARDIS [Concomitant]
     Active Substance: TELMISARTAN
     Indication: PRODUCT USED FOR UNKNOWN INDICATION
     Dosage: UNK
  24. SELBEX [Concomitant]
     Active Substance: TEPRENONE
     Indication: PRODUCT USED FOR UNKNOWN INDICATION
     Dosage: UNK
  25. PLETAAL [Concomitant]
     Active Substance: CILOSTAZOL
     Dosage: 200 MG, 1D

REACTIONS (3)
  - Off label use [Unknown]
  - Postrenal failure [Recovered/Resolved]
  - Bladder dysfunction [Recovered/Resolved]

NARRATIVE: CASE EVENT DATE: 201704
